FAERS Safety Report 25808633 (Version 1)
Quarter: 2025Q3

REPORT INFORMATION
  Report Type: Spontaneous
  Country: EU (occurrence: EU)
  Receive Date: 20250916
  Receipt Date: 20250916
  Transmission Date: 20251020
  Serious: Yes (Hospitalization, Congenital Anomaly, Other)
  Sender: DR REDDYS
  Company Number: None

PATIENT
  Sex: Male
  Weight: 2.42 kg

DRUGS (3)
  1. LAMOTRIGINE [Suspect]
     Active Substance: LAMOTRIGINE
     Indication: Juvenile myoclonic epilepsy
     Route: 064
     Dates: start: 202306, end: 202402
  2. LEVETIRACETAM [Suspect]
     Active Substance: LEVETIRACETAM
     Indication: Juvenile myoclonic epilepsy
     Route: 064
     Dates: start: 202306, end: 202402
  3. VALPROATE SODIUM [Suspect]
     Active Substance: VALPROATE SODIUM
     Indication: Juvenile myoclonic epilepsy
     Dosage: UNTIL WEEK 6
     Route: 064
     Dates: start: 202306, end: 202307

REACTIONS (8)
  - Neonatal respiratory distress syndrome [Recovered/Resolved]
  - Small for dates baby [Recovered/Resolved]
  - Temperature regulation disorder [Recovered/Resolved]
  - Infantile apnoea [Recovered/Resolved]
  - Poor feeding infant [Not Recovered/Not Resolved]
  - Developmental coordination disorder [Unknown]
  - Atrioventricular septal defect [Unknown]
  - Foetal exposure during pregnancy [Unknown]

NARRATIVE: CASE EVENT DATE: 20240201
